FAERS Safety Report 5799074-5 (Version None)
Quarter: 2008Q3

REPORT INFORMATION
  Report Type: 
  Country: None (occurrence: None)
  Receive Date: 20080702
  Receipt Date: 20080609
  Transmission Date: 20090109
  Serious: No
  Sender: FDA-Public Use
  Company Number: US-BOEHRINGER INGELHEIM GMBH, GERMANY-2008-BP-08992BP

PATIENT
  Age: 66 Year
  Sex: Male

DRUGS (4)
  1. FLOMAX [Suspect]
     Indication: URETHRITIS
  2. FLOMAX [Suspect]
     Indication: PROSTATOMEGALY
  3. MOTRIN [Suspect]
     Dates: start: 20080501
  4. LIPITOR [Concomitant]

REACTIONS (2)
  - NOCTURIA [None]
  - UPPER LIMB FRACTURE [None]
